FAERS Safety Report 23226065 (Version 3)
Quarter: 2024Q1

REPORT INFORMATION
  Report Type: Report from Study
  Country: US (occurrence: US)
  Receive Date: 20231124
  Receipt Date: 20240111
  Transmission Date: 20240410
  Serious: Yes (Life-Threatening)
  Sender: FDA-Public Use
  Company Number: US-002147023-NVSC2023US249854

PATIENT
  Sex: Female

DRUGS (1)
  1. COSENTYX [Suspect]
     Active Substance: SECUKINUMAB
     Indication: Product used for unknown indication
     Dosage: UNK
     Route: 065

REACTIONS (9)
  - Pain [Unknown]
  - Generalised oedema [Unknown]
  - Feeling abnormal [Unknown]
  - Malaise [Unknown]
  - Stress [Unknown]
  - Nervousness [Unknown]
  - Product preparation error [Unknown]
  - Product distribution issue [Unknown]
  - Product prescribing issue [Unknown]
